FAERS Safety Report 9775234 (Version 1)
Quarter: 2013Q4

REPORT INFORMATION
  Report Type: Spontaneous
  Country: US (occurrence: None)
  Receive Date: 20131219
  Receipt Date: 20131219
  Transmission Date: 20140711
  Serious: Yes (Life-Threatening, Disabling)
  Sender: FDA-Public Use
  Company Number: None

PATIENT
  Age: 58 Year
  Sex: Male
  Weight: 121.11 kg

DRUGS (1)
  1. QUETIAPINE FUMARATE [Suspect]
     Dosage: 1/2 PILL TWICE DAILY, TWICE DAILY, TAKEN BY MOUTH?
     Route: 048
     Dates: start: 20130826, end: 20131218

REACTIONS (5)
  - Overdose [None]
  - Lethargy [None]
  - Muscular weakness [None]
  - Suicidal ideation [None]
  - Insomnia [None]
